FAERS Safety Report 7891246-9 (Version None)
Quarter: 2011Q4

REPORT INFORMATION
  Report Type: 
  Country: None (occurrence: None)
  Receive Date: 20111103
  Receipt Date: 20110801
  Transmission Date: 20120403
  Serious: No
  Sender: FDA-Public Use
  Company Number: US-AMGEN-USASP2011039117

PATIENT
  Age: 51 Year
  Sex: Male

DRUGS (1)
  1. ENBREL [Suspect]
     Indication: ANKYLOSING SPONDYLITIS
     Dosage: 50 MG, QWK
     Dates: start: 20050101

REACTIONS (6)
  - RASH ERYTHEMATOUS [None]
  - NASOPHARYNGITIS [None]
  - INFLUENZA [None]
  - ARTHRALGIA [None]
  - MOBILITY DECREASED [None]
  - RASH PRURITIC [None]
